FAERS Safety Report 7726197-3 (Version None)
Quarter: 2011Q3

REPORT INFORMATION
  Report Type: 
  Country: None (occurrence: None)
  Receive Date: 20110902
  Receipt Date: 20110826
  Transmission Date: 20111222
  Serious: Yes (Other)
  Sender: FDA-Public Use
  Company Number: US-ACTELION-A-US2011-53312

PATIENT

DRUGS (1)
  1. TRACLEER [Suspect]
     Indication: PULMONARY ARTERIAL HYPERTENSION
     Dosage: UNK
     Route: 048
     Dates: start: 20110818

REACTIONS (6)
  - HYPOKINESIA [None]
  - CONFUSIONAL STATE [None]
  - ASTHENIA [None]
  - UPPER RESPIRATORY TRACT INFECTION [None]
  - PARALYSIS [None]
  - RESPIRATORY TRACT CONGESTION [None]
